FAERS Safety Report 8336012-5 (Version None)
Quarter: 2012Q2

REPORT INFORMATION
  Report Type: 
  Country: None (occurrence: None)
  Receive Date: 20120501
  Receipt Date: 20120501
  Transmission Date: 20120825
  Serious: No
  Sender: FDA-Public Use
  Company Number: None

PATIENT
  Sex: Male
  Weight: 111 kg

DRUGS (6)
  1. OMEPRAZOLE [Concomitant]
  2. ZOMETA [Suspect]
     Dosage: 4 MG
  3. GABAPENTIN [Concomitant]
  4. MIRALAX [Concomitant]
  5. OXYCODONE HCL [Concomitant]
  6. CYMBALTA [Concomitant]

REACTIONS (2)
  - OSTEONECROSIS OF JAW [None]
  - STEM CELL TRANSPLANT [None]
